FAERS Safety Report 26144188 (Version 1)
Quarter: 2025Q4

REPORT INFORMATION
  Report Type: Spontaneous
  Country: EU (occurrence: EU)
  Receive Date: 20251211
  Receipt Date: 20251211
  Transmission Date: 20260117
  Serious: Yes (Hospitalization, Other)
  Sender: RANBAXY
  Company Number: EU-EMA-DD-20250904-7482645-095613

PATIENT
  Age: 38 Year
  Sex: Male

DRUGS (4)
  1. GEMCITABINE [Suspect]
     Active Substance: GEMCITABINE
     Indication: Sarcoma metastatic
     Dosage: UNK
     Route: 065
     Dates: start: 20170414, end: 20171003
  2. DOXORUBICIN [Suspect]
     Active Substance: DOXORUBICIN
     Indication: Sarcoma
     Dosage: UNK, (FOUR COURSES)
     Route: 065
     Dates: start: 201701, end: 201703
  3. DOCETAXEL [Suspect]
     Active Substance: DOCETAXEL
     Indication: Sarcoma metastatic
     Dosage: UNK
     Route: 065
     Dates: start: 20170414, end: 20171003
  4. IFOSFAMIDE [Suspect]
     Active Substance: IFOSFAMIDE
     Indication: Sarcoma
     Dosage: UNK, (QUATRE COURS)
     Route: 065
     Dates: start: 201701, end: 201703

REACTIONS (4)
  - Sarcoma [Recovering/Resolving]
  - Malignant neoplasm progression [Unknown]
  - Metastases to lung [Unknown]
  - Product use in unapproved indication [Unknown]
